FAERS Safety Report 8460078-5 (Version None)
Quarter: 2012Q2

REPORT INFORMATION
  Report Type: 
  Country: None (occurrence: None)
  Receive Date: 20120622
  Receipt Date: 20120615
  Transmission Date: 20120825
  Serious: Yes (Other)
  Sender: FDA-Public Use
  Company Number: US-PFIZER INC-2012146269

PATIENT
  Age: 52 Year
  Sex: Male

DRUGS (5)
  1. FLUTICASONE [Interacting]
     Dosage: 500 UG, 2X/DAY
  2. RITONAVIR [Interacting]
     Indication: HIV INFECTION
     Dosage: UNK
  3. FLUCONAZOLE [Suspect]
     Indication: OROPHARYNGEAL CANDIDIASIS
     Dosage: 400 MG,DAILY
     Route: 048
  4. FLUTICASONE [Interacting]
     Indication: BRONCHITIS CHRONIC
     Dosage: 250 UG, 2X/DAY
  5. ATAZANAVIR [Concomitant]
     Indication: HIV INFECTION

REACTIONS (3)
  - DRUG INTERACTION [None]
  - CUSHING'S SYNDROME [None]
  - SECONDARY ADRENOCORTICAL INSUFFICIENCY [None]
